FAERS Safety Report 7575644-9 (Version None)
Quarter: 2011Q2

REPORT INFORMATION
  Report Type: 
  Country: None (occurrence: None)
  Receive Date: 20110628
  Receipt Date: 20110624
  Transmission Date: 20111010
  Serious: Yes (Life-Threatening)
  Sender: FDA-Public Use
  Company Number: GB-BRISTOL-MYERS SQUIBB COMPANY-15653439

PATIENT
  Age: 50 Year
  Sex: Male

DRUGS (10)
  1. VINCRISTINE [Interacting]
     Indication: NON-HODGKIN'S LYMPHOMA
     Dosage: LAST COURSE OF CHEMOTHERAPY ON 12-JUN-2011
  2. CYTARABINE [Interacting]
     Indication: NON-HODGKIN'S LYMPHOMA
     Dosage: LAST COURSE OF CHEMOTHERAPY ON 12-JUN-2011
  3. CYCLOPHOSPHAMIDE [Interacting]
     Indication: NON-HODGKIN'S LYMPHOMA
     Dosage: LAST COURSE OF CHEMOTHERAPY ON 12-JUN-2011
  4. DOXORUBICIN HCL [Interacting]
     Indication: NON-HODGKIN'S LYMPHOMA
     Dosage: LAST COURSE OF CHEMOTHERAPY ON 12-JUN-2011
  5. ETOPOSIDE [Interacting]
     Indication: NON-HODGKIN'S LYMPHOMA
     Dosage: LAST COURSE OF CHEMOTHERAPY ON 12-JUN-2011
  6. MESNA [Concomitant]
     Indication: NON-HODGKIN'S LYMPHOMA
     Dosage: LAST COURSE OF CHEMOTHERAPY ON 12-JUN-2011
  7. IFOSFAMIDE [Interacting]
     Indication: NON-HODGKIN'S LYMPHOMA
     Dosage: LAST COURSE OF CHEMOTHERAPY ON 12-JUN-2011
  8. METHOTREXATE [Interacting]
     Indication: NON-HODGKIN'S LYMPHOMA
     Dosage: LAST COURSE OF CHEMOTHERAPY ON 12-JUN-2011
  9. CLOZAPINE [Suspect]
     Dosage: TAB LAST COURSE OF CHEMOTHERAPY ON 12-JUN-2011
     Route: 048
     Dates: start: 20040915
  10. RITUXIMAB [Suspect]
     Indication: NON-HODGKIN'S LYMPHOMA
     Dosage: LAST COURSE OF CHEMOTHERAPY ON 12-JUN-2011

REACTIONS (5)
  - NEUTROPENIA [None]
  - NON-HODGKIN'S LYMPHOMA [None]
  - LEUKOPENIA [None]
  - DRUG INTERACTION [None]
  - AGRANULOCYTOSIS [None]
